FAERS Safety Report 8746175 (Version 2)
Quarter: 2012Q4

REPORT INFORMATION
  Report Type: Report from Study
  Country: AU (occurrence: AU)
  Receive Date: 20120827
  Receipt Date: 20120913
  Transmission Date: 20130627
  Serious: Yes (Other)
  Sender: FDA-Public Use
  Company Number: PHHY2012AU073080

PATIENT
  Age: 44 Year
  Sex: Male

DRUGS (6)
  1. CLOZARIL [Suspect]
     Indication: SCHIZOPHRENIA
     Dosage: 150 mg mane and 325 mg nocte
     Route: 048
     Dates: start: 2004
  2. SERENACE [Concomitant]
     Dosage: 5 mg, mane
  3. BENZATROPINE [Concomitant]
     Dosage: 2 mg, nocte
  4. CITALOPRAM [Concomitant]
     Dosage: 20 mg, mane
  5. VALIUM [Concomitant]
     Dosage: 5 mg, PRN (as required) (rarely uses)
  6. CRESTOR [Concomitant]

REACTIONS (8)
  - Ejection fraction decreased [Unknown]
  - Atrial septal defect [Unknown]
  - Ventricular extrasystoles [Unknown]
  - Dilatation ventricular [Unknown]
  - Left atrial dilatation [Unknown]
  - Sinus tachycardia [Unknown]
  - Blood glucose increased [Unknown]
  - Neutrophil count increased [Unknown]
